FAERS Safety Report 6820085-2 (Version None)
Quarter: 2010Q3

REPORT INFORMATION
  Report Type: 
  Country: None (occurrence: None)
  Receive Date: 20100707
  Receipt Date: 20100628
  Transmission Date: 20110219
  Serious: Yes (Hospitalization)
  Sender: FDA-Public Use
  Company Number: B0663922A

PATIENT
  Age: 79 Year
  Sex: Female

DRUGS (2)
  1. AMOXICILLIN AND CLAVULANATE POTASSIUM [Suspect]
     Dosage: 1G PER DAY
     Route: 048
     Dates: start: 20100418, end: 20100418
  2. PAFINUR [Suspect]
     Indication: RASH
     Dosage: 10MG PER DAY
     Route: 048
     Dates: start: 20100418, end: 20100418

REACTIONS (4)
  - DERMATITIS [None]
  - ERYTHEMA [None]
  - LIP OEDEMA [None]
  - URTICARIA [None]
